FAERS Safety Report 6754131-1 (Version None)
Quarter: 2010Q2

REPORT INFORMATION
  Report Type: 
  Country: None (occurrence: None)
  Receive Date: 20100603
  Receipt Date: 20100524
  Transmission Date: 20101027
  Serious: Yes (Hospitalization)
  Sender: FDA-Public Use
  Company Number: IT-JNJFOC-20100510644

PATIENT
  Age: 19 Year
  Sex: Female

DRUGS (4)
  1. PARACETAMOL [Suspect]
  2. PARACETAMOL [Suspect]
     Indication: TENSION HEADACHE
  3. ASPIRIN [Suspect]
     Indication: TENSION HEADACHE
  4. NIMESULIDE [Suspect]
     Indication: TENSION HEADACHE

REACTIONS (1)
  - TOXIC EPIDERMAL NECROLYSIS [None]
